FAERS Safety Report 24053159 (Version 1)
Quarter: 2024Q3

REPORT INFORMATION
  Report Type: Spontaneous
  Country: CN (occurrence: None)
  Receive Date: 20240705
  Receipt Date: 20240705
  Transmission Date: 20241016
  Serious: Yes (Hospitalization, Other)
  Sender: ASTRAZENECA
  Company Number: 2024A151652

PATIENT
  Age: 68 Year
  Sex: Male
  Weight: 60 kg

DRUGS (3)
  1. OSIMERTINIB MESYLATE [Suspect]
     Active Substance: OSIMERTINIB MESYLATE
     Indication: Neoplasm
     Route: 048
     Dates: start: 20240417, end: 20240627
  2. OSIMERTINIB MESYLATE [Suspect]
     Active Substance: OSIMERTINIB MESYLATE
     Indication: Lung adenocarcinoma
     Route: 048
     Dates: start: 20240417, end: 20240627
  3. OSIMERTINIB MESYLATE [Suspect]
     Active Substance: OSIMERTINIB MESYLATE
     Indication: Targeted cancer therapy
     Route: 048
     Dates: start: 20240417, end: 20240627

REACTIONS (1)
  - Myelosuppression [Recovering/Resolving]

NARRATIVE: CASE EVENT DATE: 20240523
